FAERS Safety Report 5395275-9 (Version None)
Quarter: 2007Q3

REPORT INFORMATION
  Report Type: 
  Country: None (occurrence: None)
  Receive Date: 20070724
  Receipt Date: 20070711
  Transmission Date: 20080115
  Serious: Yes (Other)
  Sender: FDA-Public Use
  Company Number: VE-AMGEN-US235219

PATIENT
  Sex: Male

DRUGS (2)
  1. ENBREL [Suspect]
     Indication: ANKYLOSING SPONDYLITIS
     Route: 058
     Dates: start: 20070501
  2. AZATHIOPRINE [Concomitant]
     Route: 048
     Dates: start: 20070601

REACTIONS (2)
  - BLINDNESS [None]
  - OCULAR HYPERAEMIA [None]
